FAERS Safety Report 21822966 (Version 2)
Quarter: 2025Q1

REPORT INFORMATION
  Report Type: Spontaneous
  Country: US (occurrence: US)
  Receive Date: 20230105
  Receipt Date: 20250103
  Transmission Date: 20250409
  Serious: No
  Sender: AMNEAL
  Company Number: US-AMNEAL PHARMACEUTICALS-2022-AMRX-01844

PATIENT
  Age: 49 Year
  Sex: Female
  Weight: 97.5 kg

DRUGS (15)
  1. ACTIVELLA [Suspect]
     Active Substance: ESTRADIOL\NORETHINDRONE ACETATE
     Indication: Uterine leiomyoma
     Dosage: 1 MG/0.5MG 1 /DAY
     Route: 048
     Dates: start: 20191125, end: 20221111
  2. ELAGOLIX [Suspect]
     Active Substance: ELAGOLIX
     Indication: Uterine leiomyoma
     Dosage: 300 MILLIGRAM, 1 /DAY
     Route: 048
     Dates: start: 20191125, end: 20201111
  3. ELAGOLIX [Suspect]
     Active Substance: ELAGOLIX
     Dosage: 300 MILLIGRAM, 1 /DAY
     Route: 048
     Dates: start: 20201111, end: 20220504
  4. ALBUTEROL [Concomitant]
     Active Substance: ALBUTEROL
     Indication: Asthma
     Dates: start: 1993
  5. IBUPROFEN [Concomitant]
     Active Substance: IBUPROFEN
     Indication: Pelvic pain
     Route: 048
     Dates: start: 1999
  6. VITAMINS NOS [Concomitant]
     Active Substance: VITAMINS
     Indication: Supplementation therapy
     Dosage: 1 TABLETS, 1 /DAY
     Route: 048
     Dates: start: 2012
  7. AMLODIPINE [Concomitant]
     Active Substance: AMLODIPINE BESYLATE
     Indication: Hypertension
     Dosage: 10MG, 1 /DAY
     Route: 048
     Dates: start: 2016
  8. LISINOPRIL [Concomitant]
     Active Substance: LISINOPRIL
     Indication: Hypertension
     Dosage: 10 MILLIGRAM, 1 /DAY
     Route: 048
     Dates: start: 2016
  9. OMEPRAZOLE [Concomitant]
     Active Substance: OMEPRAZOLE
     Indication: Gastrooesophageal reflux disease
     Dosage: 20 MILLIGRAM, 1 /WEEK
     Route: 048
     Dates: start: 2018
  10. FERROUS SULFATE [Concomitant]
     Active Substance: FERROUS SULFATE
     Indication: Anaemia
     Dosage: 142 MILLIGRAM, 1 /DAY
     Route: 048
     Dates: start: 20190711
  11. VITAMIN D NOS [Concomitant]
     Active Substance: CHOLECALCIFEROL\ERGOCALCIFEROL
     Indication: Vitamin D deficiency
     Dosage: 200IU 1 /DAY
     Route: 048
     Dates: start: 20190612
  12. GLYBURIDE [Concomitant]
     Active Substance: GLYBURIDE
     Indication: Type 2 diabetes mellitus
     Dosage: 5 MILLIGRAM, 1 /DAY
     Route: 048
     Dates: start: 20211011
  13. METFORMIN [Concomitant]
     Active Substance: METFORMIN HYDROCHLORIDE
     Indication: Diabetes mellitus
     Dosage: 2 500MCG, 1/ DAY
     Route: 048
     Dates: start: 20211011
  14. NORETHINDRONE [Concomitant]
     Active Substance: NORETHINDRONE
     Indication: Uterine leiomyoma
     Dosage: 10 MILLIGRAM, 1 /DAY
     Route: 048
     Dates: start: 20220309
  15. NORETHINDRONE [Concomitant]
     Active Substance: NORETHINDRONE
     Dosage: 1 5MG, 1/DAY
     Route: 048
     Dates: start: 20220402, end: 20220408

REACTIONS (1)
  - Bone density decreased [Recovered/Resolved]

NARRATIVE: CASE EVENT DATE: 20220316
